FAERS Safety Report 17001837 (Version 3)
Quarter: 2020Q2

REPORT INFORMATION
  Report Type: Spontaneous
  Country: US (occurrence: US)
  Receive Date: 20191106
  Receipt Date: 20200625
  Transmission Date: 20200713
  Serious: Yes (Other)
  Sender: FDA-Public Use
  Company Number: US-PFIZER INC-2019194275

PATIENT
  Age: 70 Year
  Sex: Male
  Weight: 63.5 kg

DRUGS (2)
  1. LYRICA [Suspect]
     Active Substance: PREGABALIN
     Indication: NEUROPATHY PERIPHERAL
     Dosage: 75 MG, 2X/DAY
     Route: 048
     Dates: start: 2017
  2. TAMSULOSIN [Concomitant]
     Active Substance: TAMSULOSIN
     Indication: URINE ABNORMALITY
     Dosage: UNK

REACTIONS (2)
  - Hypoaesthesia [Unknown]
  - Pancreatic carcinoma [Unknown]
